FAERS Safety Report 17797625 (Version 1)
Quarter: 2020Q2

REPORT INFORMATION
  Report Type: Spontaneous
  Country: US (occurrence: US)
  Receive Date: 20200518
  Receipt Date: 20200518
  Transmission Date: 20200714
  Serious: Yes (Other)
  Sender: FDA-Public Use
  Company Number: US-ABBVIE-20K-163-3403926-00

PATIENT
  Age: 75 Year
  Sex: Female

DRUGS (2)
  1. SYNTHROID [Suspect]
     Active Substance: LEVOTHYROXINE SODIUM
     Indication: PRODUCT USED FOR UNKNOWN INDICATION
     Route: 048
     Dates: end: 202002
  2. SYNTHROID [Suspect]
     Active Substance: LEVOTHYROXINE SODIUM
     Route: 048
     Dates: start: 202002

REACTIONS (18)
  - Muscle spasms [Recovered/Resolved]
  - Back pain [Unknown]
  - Muscle spasms [Unknown]
  - Pelvic deformity [Unknown]
  - Dry eye [Not Recovered/Not Resolved]
  - Ocular hyperaemia [Recovered/Resolved]
  - Tendonitis [Recovered/Resolved]
  - Osteoporosis [Unknown]
  - Blood thyroid stimulating hormone abnormal [Unknown]
  - Eye pain [Recovered/Resolved]
  - Oedema peripheral [Not Recovered/Not Resolved]
  - Abnormal weight gain [Not Recovered/Not Resolved]
  - Muscle spasms [Unknown]
  - Fall [Unknown]
  - Tendonitis [Recovering/Resolving]
  - Myalgia [Unknown]
  - Lacrimation increased [Recovered/Resolved]
  - Gait disturbance [Unknown]

NARRATIVE: CASE EVENT DATE: 2012
